FAERS Safety Report 5935976-4 (Version None)
Quarter: 2008Q4

REPORT INFORMATION
  Report Type: 
  Country: None (occurrence: None)
  Receive Date: 20081030
  Receipt Date: 20081022
  Transmission Date: 20090506
  Serious: Yes (Other)
  Sender: FDA-Public Use
  Company Number: FR-MERCK-0810FRA00072

PATIENT
  Age: 82 Year
  Sex: Male

DRUGS (1)
  1. PROSCAR [Suspect]
     Indication: PROSTATIC ADENOMA
     Route: 048
     Dates: start: 19920101

REACTIONS (1)
  - PROSTATE CANCER [None]
